FAERS Safety Report 4865432-6 (Version None)
Quarter: 2005Q4

REPORT INFORMATION
  Report Type: 
  Country: None (occurrence: None)
  Receive Date: 20051220
  Receipt Date: 20051205
  Transmission Date: 20060501
  Serious: Yes (Death)
  Sender: FDA-Public Use
  Company Number: 33329

PATIENT
  Age: 84 Year
  Sex: Female

DRUGS (1)
  1. ISOPTO ATROPINE 1.0% [Suspect]
     Dates: start: 20030801

REACTIONS (1)
  - LIMB INJURY [None]
